FAERS Safety Report 16054003 (Version 1)
Quarter: 2019Q1

REPORT INFORMATION
  Report Type: Spontaneous
  Country: None (occurrence: US)
  Receive Date: 20190308
  Receipt Date: 20190308
  Transmission Date: 20190418
  Serious: No
  Sender: FDA-Public Use
  Company Number: US-AKRON, INC.-2063776

PATIENT

DRUGS (1)
  1. EPHEDRINE SULFATE INJECTION [Suspect]
     Active Substance: EPHEDRINE SULFATE
     Route: 030

REACTIONS (2)
  - Heart rate abnormal [Not Recovered/Not Resolved]
  - Drug ineffective [Not Recovered/Not Resolved]
